FAERS Safety Report 8407293 (Version 2)
Quarter: 2013Q2

REPORT INFORMATION
  Report Type: Spontaneous
  Country: US (occurrence: None)
  Receive Date: 20111227
  Receipt Date: 20120426
  Transmission Date: 20140414
  Serious: No
  Sender: FDA-Public Use
  Company Number: PHEH2011US06609

PATIENT
  Age: 48 Year
  Sex: Female

DRUGS (5)
  1. GILENYA [Suspect]
     Indication: MULTIPLE SCLEROSIS
     Dosage: 0.5 MG, QD, ORAL
     Route: 048
     Dates: start: 20110428
  2. EFFEXOR [Concomitant]
  3. GABAPENTIN (GABAPENTIN) [Concomitant]
  4. VITAMIN D3 (COLECALCIFEROL) [Concomitant]
  5. FLAXSEED OIL (LINUM USITATISSIMUM SEED OIL) [Concomitant]

REACTIONS (4)
  - WEIGHT INCREASED [None]
  - LETHARGY [None]
  - FATIGUE [None]
  - Influenza like illness [None]
